FAERS Safety Report 17924767 (Version 1)
Quarter: 2020Q2

REPORT INFORMATION
  Report Type: Spontaneous
  Country: FR (occurrence: FR)
  Receive Date: 20200622
  Receipt Date: 20200622
  Transmission Date: 20200714
  Serious: Yes (Hospitalization)
  Sender: FDA-Public Use
  Company Number: FR-INDIVIOR EUROPE LIMITED-INDV-125282-2020

PATIENT
  Age: 36 Year
  Sex: Male
  Weight: 50 kg

DRUGS (1)
  1. SUBUTEX [Suspect]
     Active Substance: BUPRENORPHINE HYDROCHLORIDE
     Indication: PRODUCT SUBSTITUTION
     Dosage: UNK
     Route: 042
     Dates: start: 20200507, end: 20200507

REACTIONS (5)
  - Injection site haemorrhage [Recovered/Resolved]
  - Drug abuse [Recovered/Resolved]
  - Intentional product use issue [Recovered/Resolved]
  - Vascular pseudoaneurysm [Recovered/Resolved]
  - Injection site abscess [Recovered/Resolved]

NARRATIVE: CASE EVENT DATE: 202005
